FAERS Safety Report 7529018-7 (Version None)
Quarter: 2011Q2

REPORT INFORMATION
  Report Type: 
  Country: None (occurrence: None)
  Receive Date: 20110607
  Receipt Date: 20110530
  Transmission Date: 20111010
  Serious: Yes (Death, Life-Threatening, Hospitalization, Other)
  Sender: FDA-Public Use
  Company Number: EG-SANOFI-AVENTIS-2011SA034071

PATIENT
  Age: 61 Year
  Sex: Female

DRUGS (1)
  1. LANTUS [Suspect]
     Indication: TYPE 2 DIABETES MELLITUS
     Dosage: DOSE:40 UNIT(S)
     Route: 058
     Dates: start: 20100808, end: 20100824

REACTIONS (4)
  - CARDIAC FAILURE [None]
  - DIABETIC HYPERGLYCAEMIC COMA [None]
  - DRUG INEFFECTIVE [None]
  - FATIGUE [None]
